FAERS Safety Report 15823110 (Version 3)
Quarter: 2019Q2

REPORT INFORMATION
  Report Type: Spontaneous
  Country: IL (occurrence: IL)
  Receive Date: 20190114
  Receipt Date: 20190521
  Transmission Date: 20190711
  Serious: Yes (Hospitalization)
  Sender: FDA-Public Use
  Company Number: IL-B.I. PHARMACEUTICALS,INC./RIDGEFIELD-2019-BI-001118

PATIENT
  Age: 70 Year
  Sex: Male

DRUGS (1)
  1. JARDIANCE DUO [Suspect]
     Active Substance: EMPAGLIFLOZIN\METFORMIN HYDROCHLORIDE
     Indication: DIABETES MELLITUS
     Dosage: 5/850MILLIGRAM
     Route: 065
     Dates: start: 201810, end: 201811

REACTIONS (5)
  - Dyspnoea [Recovering/Resolving]
  - Goitre [Unknown]
  - Epiglottitis obstructive [Recovering/Resolving]
  - Suffocation feeling [Recovering/Resolving]
  - Chest pain [Recovering/Resolving]

NARRATIVE: CASE EVENT DATE: 20181111
